FAERS Safety Report 4718081-4 (Version None)
Quarter: 2005Q3

REPORT INFORMATION
  Report Type: 
  Country: None (occurrence: None)
  Receive Date: 20050718
  Receipt Date: 20050420
  Transmission Date: 20060218
  Serious: No
  Sender: FDA-Public Use
  Company Number: 2005000760

PATIENT
  Age: 70 Year
  Sex: Female

DRUGS (5)
  1. TARCEVA [Suspect]
     Indication: NON-SMALL CELL LUNG CANCER
     Dosage: 100 MG (QD), ORAL
     Route: 048
     Dates: start: 20050201
  2. HYZAR [Concomitant]
  3. AVANDIA [Concomitant]
  4. ASPIRIN [Concomitant]
  5. CELEBREX [Concomitant]

REACTIONS (1)
  - EPISTAXIS [None]
